FAERS Safety Report 17230129 (Version 2)
Quarter: 2020Q1

REPORT INFORMATION
  Report Type: Spontaneous
  Country: IT (occurrence: IT)
  Receive Date: 20200103
  Receipt Date: 20200110
  Transmission Date: 20200409
  Serious: Yes (Hospitalization, Other)
  Sender: FDA-Public Use
  Company Number: IT-PFIZER INC-2019562256

PATIENT
  Sex: Female

DRUGS (4)
  1. CARBOPLATIN. [Suspect]
     Active Substance: CARBOPLATIN
     Indication: OVARIAN CANCER STAGE III
     Dosage: UNK, CYCLIC (SEVEN CYCLES IN TOTAL)
  2. PACLITAXEL. [Suspect]
     Active Substance: PACLITAXEL
     Indication: OVARIAN CANCER STAGE III
     Dosage: UNK, CYCLIC (SEVEN CYCLES IN TOTAL)
     Dates: start: 2008
  3. MITOMYCIN C [Suspect]
     Active Substance: MITOMYCIN
     Indication: METASTASIS
     Dosage: UNK
     Route: 033
  4. CISPLATIN. [Suspect]
     Active Substance: CISPLATIN
     Indication: METASTASIS
     Dosage: UNK
     Route: 033

REACTIONS (4)
  - Gene mutation [Unknown]
  - Bronchitis [Recovering/Resolving]
  - Alexander disease [Unknown]
  - Respiratory failure [Recovering/Resolving]
